FAERS Safety Report 21945968 (Version 3)
Quarter: 2023Q4

REPORT INFORMATION
  Report Type: Spontaneous
  Country: US (occurrence: US)
  Receive Date: 20230202
  Receipt Date: 20231021
  Transmission Date: 20240110
  Serious: No
  Sender: FDA-Public Use
  Company Number: US-SA-SAC20221222001525

PATIENT
  Age: 78 Year
  Sex: Female

DRUGS (1)
  1. KEVZARA [Suspect]
     Active Substance: SARILUMAB
     Indication: Rheumatoid arthritis
     Dosage: 200 MG, QOW
     Route: 058
     Dates: start: 202203

REACTIONS (8)
  - Feeling abnormal [Unknown]
  - Back pain [Unknown]
  - Dyspnoea [Unknown]
  - Pain in extremity [Unknown]
  - Sinusitis [Unknown]
  - Infection [Unknown]
  - Pain [Unknown]
  - Joint swelling [Unknown]
